FAERS Safety Report 10945385 (Version 4)
Quarter: 2015Q2

REPORT INFORMATION
  Report Type: Spontaneous
  Country: US (occurrence: US)
  Receive Date: 20150323
  Receipt Date: 20150423
  Transmission Date: 20150821
  Serious: Yes (Other)
  Sender: FDA-Public Use
  Company Number: US-BAYER-2015-060518

PATIENT
  Age: 17 Year
  Sex: Female
  Weight: 95.24 kg

DRUGS (1)
  1. SKYLA [Suspect]
     Active Substance: LEVONORGESTREL
     Indication: CONTRACEPTION
     Dosage: 14 MCG/24HR, CONT
     Route: 015
     Dates: start: 20150227, end: 20150227

REACTIONS (3)
  - Procedural haemorrhage [None]
  - Device difficult to use [None]
  - Off label use [None]
